FAERS Safety Report 9408417 (Version 1)
Quarter: 2013Q3

REPORT INFORMATION
  Report Type: Spontaneous
  Country: US (occurrence: US)
  Receive Date: 20130718
  Receipt Date: 20130718
  Transmission Date: 20140515
  Serious: Yes (Hospitalization, Disabling, Other)
  Sender: FDA-Public Use
  Company Number: US-009507513-1108USA00581

PATIENT
  Sex: Female

DRUGS (3)
  1. FOSAMAX [Suspect]
     Indication: OSTEOPENIA
     Dosage: 70 MG, QW
     Route: 048
     Dates: start: 200208, end: 20110703
  2. SINGULAIR [Concomitant]
     Dosage: UNK MG, UNK
     Route: 048
  3. ALENDRONATE SODIUM [Suspect]

REACTIONS (4)
  - Femur fracture [Recovering/Resolving]
  - Foot fracture [Recovering/Resolving]
  - Fall [Recovering/Resolving]
  - Limb injury [Recovering/Resolving]
